FAERS Safety Report 7621052-1 (Version None)
Quarter: 2011Q3

REPORT INFORMATION
  Report Type: 
  Country: None (occurrence: None)
  Receive Date: 20110719
  Receipt Date: 20110208
  Transmission Date: 20111222
  Serious: No
  Sender: FDA-Public Use
  Company Number: US-KINGPHARMUSA00001-K201100157

PATIENT
  Age: 70 Year
  Sex: Female
  Weight: 63.492 kg

DRUGS (3)
  1. SIMVASTATIN [Concomitant]
     Dosage: UNK
     Dates: start: 20110128
  2. LEVOXYL [Suspect]
     Dosage: 168 MCG, QD
     Route: 048
     Dates: end: 20110119
  3. LEVOXYL [Suspect]
     Indication: HYPOTHYROIDISM
     Dosage: 224 MCG, QD
     Route: 048
     Dates: start: 20110120

REACTIONS (1)
  - ALOPECIA [None]
